FAERS Safety Report 17559294 (Version 1)
Quarter: 2020Q1

REPORT INFORMATION
  Report Type: Report from Study
  Country: None (occurrence: TW)
  Receive Date: 20200319
  Receipt Date: 20200319
  Transmission Date: 20200409
  Serious: Yes (Hospitalization)
  Sender: FDA-Public Use
  Company Number: TW-ABBVIE-20K-153-3323862-00

PATIENT
  Sex: Male
  Weight: 71 kg

DRUGS (3)
  1. HUMIRA [Suspect]
     Active Substance: ADALIMUMAB
     Indication: PSORIASIS
     Route: 058
     Dates: start: 20160408
  2. HUMIRA [Suspect]
     Active Substance: ADALIMUMAB
     Indication: PSORIASIS
     Route: 058
     Dates: start: 20180627, end: 20200226
  3. PRAVAFEN [Concomitant]
     Indication: HYPERLIPIDAEMIA
     Dosage: 40MG/160MG (EVERY NIGHT)
     Route: 048
     Dates: start: 20200104, end: 20200314

REACTIONS (1)
  - Hepatitis acute [Unknown]
